FAERS Safety Report 10041680 (Version 1)
Quarter: 2014Q1

REPORT INFORMATION
  Report Type: Spontaneous
  Country: JP (occurrence: None)
  Receive Date: 20140325
  Receipt Date: 20140325
  Transmission Date: 20141002
  Serious: Yes (Hospitalization, Other)
  Sender: FDA-Public Use
  Company Number: ADR-2014-00461

PATIENT
  Age: 20 Year
  Sex: Male

DRUGS (4)
  1. GABALON [Suspect]
     Indication: HEAD INJURY
     Dates: start: 20101221
  2. MUCODYNE [Suspect]
     Dates: start: 20110104
  3. MAGMITT [Suspect]
     Dosage: TUBAL
     Dates: start: 20110104
  4. URSO [Suspect]
     Dosage: TUBAL
     Dates: start: 20110104

REACTIONS (3)
  - Skin maceration [None]
  - Wound drainage [None]
  - Erythema [None]
